FAERS Safety Report 5160405-0 (Version None)
Quarter: 2006Q4

REPORT INFORMATION
  Report Type: 
  Country: None (occurrence: None)
  Receive Date: 20061121
  Receipt Date: 20061108
  Transmission Date: 20070319
  Serious: Yes (Hospitalization, Disabling, Other)
  Sender: FDA-Public Use
  Company Number: 233517K06USA

PATIENT
  Age: 38 Year
  Sex: Female
  Weight: 42.6 kg

DRUGS (4)
  1. REBIF [Suspect]
     Indication: MULTIPLE SCLEROSIS
     Dosage: 44 MCG, 3 IN 1 WEEKS, SUBCUTANEOUS
     Route: 058
     Dates: start: 20050607, end: 20060117
  2. ELMIRON [Concomitant]
  3. COPAXONE [Concomitant]
  4. NEULASTA [Concomitant]

REACTIONS (2)
  - LYMPHADENOPATHY [None]
  - NON-SMALL CELL LUNG CANCER STAGE III [None]
